FAERS Safety Report 16986716 (Version 1)
Quarter: 2019Q4

REPORT INFORMATION
  Report Type: Spontaneous
  Country: US (occurrence: US)
  Receive Date: 20191026
  Receipt Date: 20191026
  Transmission Date: 20200122
  Serious: No
  Sender: FDA-Public Use
  Company Number: None

PATIENT
  Age: 32 Year
  Sex: Male
  Weight: 74.25 kg

DRUGS (6)
  1. PREPARATION H NOS [Concomitant]
     Active Substance: COCOA BUTTER\PETROLATUM\PHENYLEPHRINE HYDROCHLORIDE\PHENYLEPHRINE HYDROCHLORIDE OR MINERAL OIL
  2. SERTRALINE [Suspect]
     Active Substance: SERTRALINE HYDROCHLORIDE
  3. METRONIDAZOLE. [Suspect]
     Active Substance: METRONIDAZOLE
  4. ONDANSETRON 4MG TABLET, GENERIC FOR ZOFRAN [Suspect]
     Active Substance: ONDANSETRON HYDROCHLORIDE
     Indication: NAUSEA
     Dosage: ?          QUANTITY:2 TABLET(S);?
     Route: 048
     Dates: start: 20191009, end: 20191010
  5. CIPROFLOXACIN. [Suspect]
     Active Substance: CIPROFLOXACIN
  6. CLONAZEPAM. [Suspect]
     Active Substance: CLONAZEPAM

REACTIONS (7)
  - Nausea [None]
  - Hallucination, visual [None]
  - Hallucination, olfactory [None]
  - Withdrawal syndrome [None]
  - Hallucination, auditory [None]
  - Muscle spasms [None]
  - Nightmare [None]

NARRATIVE: CASE EVENT DATE: 20191009
